FAERS Safety Report 25416737 (Version 2)
Quarter: 2025Q3

REPORT INFORMATION
  Report Type: Report from Study
  Country: US (occurrence: US)
  Receive Date: 20250610
  Receipt Date: 20250924
  Transmission Date: 20251020
  Serious: No
  Sender: SUNOVION
  Company Number: US-SUMITOMO PHARMA SWITZERLAND GMBH-2025SPA006054

PATIENT
  Age: 72 Year
  Sex: Male

DRUGS (18)
  1. ORGOVYX [Suspect]
     Active Substance: RELUGOLIX
     Indication: Prostate cancer
     Route: 048
  2. ORGOVYX [Suspect]
     Active Substance: RELUGOLIX
     Dosage: 120 MG, QD
     Route: 048
     Dates: start: 202503
  3. AMLODIPINE [Concomitant]
     Active Substance: AMLODIPINE BESYLATE
  4. ASPIRIN [Concomitant]
     Active Substance: ASPIRIN
  5. ATORVASTATIN [Concomitant]
     Active Substance: ATORVASTATIN
  6. BETAMETHASONE DIPROPIONATE [Concomitant]
     Active Substance: BETAMETHASONE DIPROPIONATE
  7. CLINDAMYCIN [Concomitant]
     Active Substance: CLINDAMYCIN
  8. FISH OIL [Concomitant]
     Active Substance: FISH OIL
  9. ELIDEL [Concomitant]
     Active Substance: PIMECROLIMUS
  10. FLOMAX [Concomitant]
     Active Substance: TAMSULOSIN HYDROCHLORIDE
  11. Losartan k/hctz [Concomitant]
  12. METOPROLOL [Concomitant]
     Active Substance: METOPROLOL
  13. VITAMINS [Concomitant]
     Active Substance: VITAMINS
  14. NITROSTAT [Concomitant]
     Active Substance: NITROGLYCERIN
  15. PANTOPRAZOLE [Concomitant]
     Active Substance: PANTOPRAZOLE
  16. PROCHLORPERAZINE [Concomitant]
     Active Substance: PROCHLORPERAZINE
  17. TAMSULOSIN [Concomitant]
     Active Substance: TAMSULOSIN
  18. TYLENOL [Concomitant]
     Active Substance: ACETAMINOPHEN

REACTIONS (6)
  - Pain [Unknown]
  - Fatigue [Unknown]
  - Hot flush [Unknown]
  - Asthenia [Unknown]
  - Arthralgia [Unknown]
  - Weight increased [Unknown]
